FAERS Safety Report 14242530 (Version 1)
Quarter: 2017Q4

REPORT INFORMATION
  Report Type: Spontaneous
  Country: US (occurrence: None)
  Receive Date: 20171130
  Receipt Date: 20171130
  Transmission Date: 20180321
  Serious: Yes (Other)
  Sender: FDA-Public Use
  Company Number: None

PATIENT
  Age: 68 Year
  Sex: Female

DRUGS (1)
  1. TAMIFLU [Suspect]
     Active Substance: OSELTAMIVIR PHOSPHATE
     Indication: PLASMA CELL MYELOMA
     Route: 048
     Dates: start: 20171107

REACTIONS (3)
  - Decreased appetite [None]
  - Asthenia [None]
  - General physical health deterioration [None]

NARRATIVE: CASE EVENT DATE: 20171114
